FAERS Safety Report 4408078-6 (Version None)
Quarter: 2004Q3

REPORT INFORMATION
  Report Type: 
  Country: None (occurrence: None)
  Receive Date: 20040722
  Receipt Date: 20040308
  Transmission Date: 20050211
  Serious: Yes (Death)
  Sender: FDA-Public Use
  Company Number: SANDOZ-JUL-04-0448

PATIENT
  Age: 88 Year
  Sex: Female

DRUGS (3)
  1. AZATHIOPRINE [Suspect]
     Indication: POLYMYALGIA RHEUMATICA
     Dosage: ORAL
     Route: 048
     Dates: start: 20031029, end: 20031030
  2. ALENDRONATE SODIUM [Concomitant]
  3. OMEPRAZOLE [Concomitant]

REACTIONS (5)
  - ANAEMIA [None]
  - CIRCULATORY COLLAPSE [None]
  - GENERAL PHYSICAL HEALTH DETERIORATION [None]
  - NEUTROPENIA [None]
  - TOXIC SHOCK SYNDROME STAPHYLOCOCCAL [None]
